FAERS Safety Report 11546220 (Version 3)
Quarter: 2015Q4

REPORT INFORMATION
  Report Type: Report from Study
  Country: MX (occurrence: MX)
  Receive Date: 20150924
  Receipt Date: 20151014
  Transmission Date: 20160304
  Serious: Yes (Other)
  Sender: FDA-Public Use
  Company Number: PHHY2015MX104138

PATIENT
  Age: 64 Year
  Sex: Female

DRUGS (7)
  1. SITAGLIPTIN [Concomitant]
     Active Substance: SITAGLIPTIN
     Indication: DIABETES MELLITUS
     Dosage: UNK
     Route: 048
  2. ZYKADIA [Suspect]
     Active Substance: CERITINIB
     Dosage: 1 DF, QID WITH THE CORRESPONDING FASTING 2 HOURS BEFORE AND 2 HOURS AFTER THE ADMINISTRATION
     Route: 065
  3. COMPLEX B//VITAMIN B COMPLEX [Concomitant]
     Indication: HERNIA
     Dosage: 100 MG, UNK
     Route: 048
  4. METOPROLOL [Concomitant]
     Active Substance: METOPROLOL
     Indication: VITAMIN SUPPLEMENTATION
     Dosage: 1 DF, UNK
     Route: 048
     Dates: start: 201508
  5. ZYKADIA [Suspect]
     Active Substance: CERITINIB
     Indication: LUNG NEOPLASM MALIGNANT
     Dosage: 4 OT, QD
     Route: 065
     Dates: start: 20150821
  6. ZYKADIA [Suspect]
     Active Substance: CERITINIB
     Dosage: 5 OT, EVERY 24 HOURS
     Route: 065
     Dates: start: 20150821, end: 20150922
  7. FOLIC ACID. [Concomitant]
     Active Substance: FOLIC ACID
     Indication: VITAMIN SUPPLEMENTATION
     Dosage: 1 DF, UNK
     Route: 048
     Dates: start: 201508

REACTIONS (13)
  - Asthenia [Not Recovered/Not Resolved]
  - Depressed mood [Unknown]
  - Dry skin [Not Recovered/Not Resolved]
  - Diarrhoea [Recovered/Resolved]
  - Fear [Unknown]
  - Diarrhoea [Recovered/Resolved]
  - Feeling cold [Unknown]
  - Abdominal pain upper [Unknown]
  - Fatigue [Unknown]
  - Dizziness [Recovering/Resolving]
  - Feeling of body temperature change [Not Recovered/Not Resolved]
  - Dehydration [Not Recovered/Not Resolved]
  - Thirst [Not Recovered/Not Resolved]

NARRATIVE: CASE EVENT DATE: 20150821
